FAERS Safety Report 21060764 (Version 1)
Quarter: 2022Q3

REPORT INFORMATION
  Report Type: Spontaneous
  Country: US (occurrence: US)
  Receive Date: 20220709
  Receipt Date: 20220709
  Transmission Date: 20221027
  Serious: No
  Sender: FDA-Public Use
  Company Number: US-LUPIN PHARMACEUTICALS INC.-2022-09219

PATIENT
  Sex: Female
  Weight: 68.027 kg

DRUGS (5)
  1. LISINOPRIL [Suspect]
     Active Substance: LISINOPRIL
     Indication: Hypertension
     Dosage: 1 DOSAGE FORM, BID (STARTED 12 YEARS AGO)
     Route: 048
     Dates: end: 20220621
  2. LEVOTHYROXINE [Concomitant]
     Active Substance: LEVOTHYROXINE
     Indication: Hypothyroidism
     Dosage: 1 DOSAGE FORM, QD
     Route: 065
  3. PANTOPRAZOLE [Concomitant]
     Active Substance: PANTOPRAZOLE
     Indication: Gastrooesophageal reflux disease
     Dosage: 1 DOSAGE FORM, QD
     Route: 065
  4. TAGRISSO [Concomitant]
     Active Substance: OSIMERTINIB
     Indication: Cancer hormonal therapy
     Dosage: 1 DOSAGE FORM, QD
     Route: 065
  5. FLOMAX [Concomitant]
     Active Substance: TAMSULOSIN HYDROCHLORIDE
     Indication: Pollakiuria
     Dosage: 1 DOSAGE FORM, QD
     Route: 065

REACTIONS (1)
  - Swelling face [Recovered/Resolved]
